FAERS Safety Report 4470146-0 (Version None)
Quarter: 2004Q3

REPORT INFORMATION
  Report Type: 
  Country: None (occurrence: None)
  Receive Date: 20040910
  Receipt Date: 20040728
  Transmission Date: 20050211
  Serious: No
  Sender: FDA-Public Use
  Company Number: 2004-00287

PATIENT
  Age: 59 Year
  Sex: Female
  Weight: 70.3 kg

DRUGS (2)
  1. VELCADE [Suspect]
     Indication: MULTIPLE MYELOMA
     Dosage: 2.50 MG, 2.00 MG, INTRAVENOUS
     Route: 042
     Dates: start: 20040301, end: 20040501
  2. VELCADE [Suspect]
     Indication: MULTIPLE MYELOMA
     Dosage: 2.50 MG, 2.00 MG, INTRAVENOUS
     Route: 042
     Dates: start: 20040726

REACTIONS (1)
  - NEUROPATHY PERIPHERAL [None]
